FAERS Safety Report 19650699 (Version 2)
Quarter: 2021Q3

REPORT INFORMATION
  Report Type: Spontaneous
  Country: FR (occurrence: FR)
  Receive Date: 20210803
  Receipt Date: 20210901
  Transmission Date: 20211014
  Serious: Yes (Other)
  Sender: FDA-Public Use
  Company Number: FR-AUROBINDO-AUR-APL-2021-033029

PATIENT
  Age: 78 Year
  Sex: Male

DRUGS (4)
  1. VERAPAMIL SANDOZ [Suspect]
     Active Substance: VERAPAMIL HYDROCHLORIDE
     Indication: TACHYCARDIA
     Dosage: 120 MILLIGRAM, ONCE A DAY
     Route: 065
     Dates: start: 20210610
  2. VERAPAMIL SANDOZ [Suspect]
     Active Substance: VERAPAMIL HYDROCHLORIDE
     Indication: OBSTRUCTION GASTRIC
  3. LISINOPRIL TABLET [Suspect]
     Active Substance: LISINOPRIL
     Indication: PRODUCT USED FOR UNKNOWN INDICATION
     Dosage: 20 MILLIGRAM, ONCE A DAY
     Route: 065
  4. INEXIUM [Suspect]
     Active Substance: ESOMEPRAZOLE
     Indication: PRODUCT USED FOR UNKNOWN INDICATION
     Dosage: UNK
     Route: 065

REACTIONS (6)
  - Arthralgia [Unknown]
  - Muscular weakness [Unknown]
  - Vertigo [Unknown]
  - Hypotension [Recovered/Resolved]
  - Dizziness [Unknown]
  - Angina pectoris [Unknown]
